FAERS Safety Report 10090416 (Version 1)
Quarter: 2014Q2

REPORT INFORMATION
  Report Type: Spontaneous
  Country: US (occurrence: US)
  Receive Date: 20140421
  Receipt Date: 20140421
  Transmission Date: 20141212
  Serious: Yes (Hospitalization)
  Sender: FDA-Public Use
  Company Number: US-BAYER-2014-056375

PATIENT
  Age: 38 Year
  Sex: Female

DRUGS (14)
  1. YASMIN [Suspect]
     Indication: MENOMETRORRHAGIA
     Dosage: UNK
     Dates: end: 20021005
  2. PAXIL [Concomitant]
     Indication: ANXIETY
     Dosage: 20 MG, DAILY
     Route: 048
  3. PAXIL [Concomitant]
     Indication: INSOMNIA
  4. SINEMET [Concomitant]
     Indication: RESTLESS LEGS SYNDROME
     Dosage: 10/100, TWO AT BEDTIME
     Route: 048
  5. BAYER PM [ACETYLSALICYLIC ACID,DIPHENHYDRAMINE HYDROCHLORIDE] [Concomitant]
  6. IRON [Concomitant]
  7. PROTONIX [Concomitant]
  8. LUPRON [Concomitant]
  9. COLACE [Concomitant]
  10. FOLIC ACID [Concomitant]
  11. MIRAPEX [Concomitant]
  12. RESTORIL [Concomitant]
  13. LEVAQUIN [Concomitant]
  14. KLONOPIN [Concomitant]
     Indication: RESTLESS LEGS SYNDROME

REACTIONS (1)
  - Deep vein thrombosis [None]
